FAERS Safety Report 19668699 (Version 1)
Quarter: 2021Q3

REPORT INFORMATION
  Report Type: Spontaneous
  Country: US (occurrence: US)
  Receive Date: 20210806
  Receipt Date: 20210806
  Transmission Date: 20211014
  Serious: Yes (Hospitalization)
  Sender: FDA-Public Use
  Company Number: US-AMNEAL PHARMACEUTICALS-2021-AMRX-03042

PATIENT
  Sex: Male

DRUGS (25)
  1. RITUXIMAB. [Suspect]
     Active Substance: RITUXIMAB
     Indication: B-CELL LYMPHOMA
     Dosage: 850 MILLIGRAM, ONCE
     Route: 042
     Dates: start: 20201113, end: 20201113
  2. IFOSFAMIDE. [Suspect]
     Active Substance: IFOSFAMIDE
     Dosage: 11500 MILLIGRAM, ONCE
     Route: 042
     Dates: start: 20201204, end: 20201205
  3. CARBOPLATIN. [Suspect]
     Active Substance: CARBOPLATIN
     Dosage: 730 MILLIGRAM, ONCE
     Route: 042
     Dates: start: 20201230, end: 20201230
  4. RITUXIMAB. [Suspect]
     Active Substance: RITUXIMAB
     Dosage: 850 MILLIGRAM, ONCE
     Route: 042
     Dates: start: 20201203, end: 20201203
  5. FLUCONAZOLE. [Concomitant]
     Active Substance: FLUCONAZOLE
     Indication: PROPHYLAXIS
     Dosage: UNK
     Route: 065
  6. CARMUSTINE. [Suspect]
     Active Substance: CARMUSTINE
     Indication: B-CELL LYMPHOMA
     Dosage: 300 MILLIGRAM
     Route: 065
     Dates: start: 20210121, end: 20210122
  7. IFOSFAMIDE. [Suspect]
     Active Substance: IFOSFAMIDE
     Dosage: 11500 MILLIGRAM, ONCE
     Route: 042
     Dates: start: 20201230, end: 20201231
  8. ORNITHINE [Concomitant]
     Active Substance: ORNITHINE
     Indication: PRODUCT USED FOR UNKNOWN INDICATION
     Dosage: UNK
     Route: 065
  9. OMEPRAZOLE. [Concomitant]
     Active Substance: OMEPRAZOLE
     Indication: GASTROOESOPHAGEAL REFLUX DISEASE
     Dosage: UNK
     Route: 065
  10. LEVOFLOXACIN. [Concomitant]
     Active Substance: LEVOFLOXACIN
     Indication: PROPHYLAXIS
     Dosage: UNK
     Route: 065
  11. IFOSFAMIDE. [Suspect]
     Active Substance: IFOSFAMIDE
     Indication: B-CELL LYMPHOMA
     Dosage: 11500 MILLIGRAM, ONCE
     Route: 042
     Dates: start: 20201114, end: 20201115
  12. ETOPOSIDE. [Suspect]
     Active Substance: ETOPOSIDE
     Dosage: 230 MILLIGRAM, DAILY
     Route: 042
     Dates: start: 20201229, end: 20201231
  13. RITUXIMAB. [Suspect]
     Active Substance: RITUXIMAB
     Dosage: 850 MILLIGRAM, ONCE
     Route: 042
     Dates: start: 20201229, end: 20201229
  14. CARBOPLATIN. [Suspect]
     Active Substance: CARBOPLATIN
     Indication: B-CELL LYMPHOMA
     Dosage: 730 MILLIGRAM, ONCE
     Route: 042
     Dates: start: 20201114, end: 20201114
  15. CYTARABINE. [Suspect]
     Active Substance: CYTARABINE
     Indication: B-CELL LYMPHOMA
     Dosage: UNK, 400 MG
     Route: 065
     Dates: start: 20210122, end: 20210125
  16. MELPHALAN. [Suspect]
     Active Substance: MELPHALAN
     Indication: B-CELL LYMPHOMA
     Dosage: UNK, 322 MG
     Route: 065
     Dates: start: 20210126, end: 20210126
  17. HYDROCHLOROTHIAZIDE. [Concomitant]
     Active Substance: HYDROCHLOROTHIAZIDE
     Indication: PRODUCT USED FOR UNKNOWN INDICATION
     Dosage: UNK
     Route: 065
  18. CLARITINE [Concomitant]
     Active Substance: LORATADINE
     Indication: PROPHYLAXIS
     Dosage: UNK
     Route: 065
  19. ETOPOSIDE. [Suspect]
     Active Substance: ETOPOSIDE
     Indication: B-CELL LYMPHOMA
     Dosage: 230 MILLIGRAM, DAILY
     Route: 042
     Dates: start: 20201113, end: 20201115
  20. ETOPOSIDE. [Suspect]
     Active Substance: ETOPOSIDE
     Dosage: UNK, 400 MG
     Route: 065
     Dates: start: 20210122, end: 20210125
  21. MELATONIN [Concomitant]
     Active Substance: MELATONIN
     Indication: INSOMNIA
     Dosage: UNK
     Route: 065
  22. TELMISARTAN. [Concomitant]
     Active Substance: TELMISARTAN
     Indication: PRODUCT USED FOR UNKNOWN INDICATION
     Dosage: UNK
     Route: 065
  23. URSODIOL. [Concomitant]
     Active Substance: URSODIOL
     Indication: PROPHYLAXIS
     Dosage: UNK
     Route: 065
  24. ETOPOSIDE. [Suspect]
     Active Substance: ETOPOSIDE
     Dosage: 230 MILLIGRAM, DAILY
     Route: 042
     Dates: start: 20201203, end: 20201205
  25. CARBOPLATIN. [Suspect]
     Active Substance: CARBOPLATIN
     Dosage: 730 MILLIGRAM, ONCE
     Route: 042
     Dates: start: 20201204, end: 20201204

REACTIONS (2)
  - Neutropenia [Recovered/Resolved]
  - Chills [Recovered/Resolved]

NARRATIVE: CASE EVENT DATE: 20210202
